FAERS Safety Report 5973206-8 (Version None)
Quarter: 2008Q4

REPORT INFORMATION
  Report Type: 
  Country: None (occurrence: None)
  Receive Date: 20081125
  Receipt Date: 20081112
  Transmission Date: 20090506
  Serious: Yes (Hospitalization)
  Sender: FDA-Public Use
  Company Number: 232821J08USA

PATIENT
  Age: 50 Year
  Sex: Female

DRUGS (6)
  1. REBIF [Suspect]
     Indication: MULTIPLE SCLEROSIS
     Dosage: 44 MCG, 3 IN 1 WEEKS, SUBCUTANEOUS
     Route: 058
     Dates: start: 20071121
  2. MORPHINE [Suspect]
     Indication: PAIN
     Dosage: AS REQUIRED
  3. COUMADIN [Concomitant]
  4. UNSPECIFIED MEDICATIONS (ALL OTHER THERAPEUTIC PRODUCTS) [Concomitant]
  5. FLORINEF [Concomitant]
  6. MIDODRINE HYDROCHLORIDE [Concomitant]

REACTIONS (3)
  - INTERNATIONAL NORMALISED RATIO INCREASED [None]
  - ORTHOSTATIC HYPOTENSION [None]
  - PROTHROMBIN TIME PROLONGED [None]
